FAERS Safety Report 7079196-1 (Version None)
Quarter: 2010Q4

REPORT INFORMATION
  Report Type: 
  Country: None (occurrence: None)
  Receive Date: 20101102
  Receipt Date: 20101027
  Transmission Date: 20110411
  Serious: Yes (Hospitalization)
  Sender: FDA-Public Use
  Company Number: B0678781A

PATIENT
  Sex: Male
  Weight: 63 kg

DRUGS (15)
  1. MELPHALAN HYDROCHLORIDE [Suspect]
     Indication: MULTIPLE MYELOMA
     Dosage: 12MG PER DAY
     Dates: start: 20100614
  2. THALIDOMIDE [Suspect]
     Indication: MULTIPLE MYELOMA
     Dosage: 100MG PER DAY
     Route: 048
     Dates: start: 20100614
  3. PREDNISONE [Suspect]
     Indication: MULTIPLE MYELOMA
     Dosage: 125MG PER DAY
     Dates: start: 20100614
  4. CLEXANE [Concomitant]
     Indication: THROMBOSIS PROPHYLAXIS
     Dosage: 40MG PER DAY
     Route: 058
  5. MORPHINE SULFATE [Concomitant]
     Indication: BACK PAIN
     Dosage: 10MG AS REQUIRED
     Route: 048
  6. NULYTELY [Concomitant]
     Indication: CONSTIPATION
     Dosage: 1SAC AS REQUIRED
     Route: 048
  7. ACYCLOVIR SODIUM [Concomitant]
     Indication: ANTIVIRAL PROPHYLAXIS
     Dosage: 800MG TWICE PER DAY
     Route: 048
     Dates: start: 20100521
  8. SENNA [Concomitant]
     Indication: CONSTIPATION
     Route: 048
     Dates: start: 20100519
  9. DOMPERIDONE [Concomitant]
     Dosage: 80MG FOUR TIMES PER DAY
     Route: 048
     Dates: start: 20100620
  10. PARACETAMOL [Concomitant]
     Indication: BACK PAIN
     Dosage: 4G AS REQUIRED
     Route: 048
     Dates: start: 20100101
  11. MORPHINE SULFATE [Concomitant]
     Dosage: 60MG TWICE PER DAY
     Route: 048
     Dates: start: 20100620
  12. OMEPRAZOLE [Concomitant]
     Indication: GASTRITIS PROPHYLAXIS
     Dosage: 20MG PER DAY
     Route: 048
     Dates: start: 20100726
  13. MORPHINE SULFATE [Concomitant]
     Dosage: 5ML AS REQUIRED
     Route: 048
     Dates: start: 20100620
  14. AMITRIPTYLINE HCL [Concomitant]
     Indication: INSOMNIA
     Dosage: 10MG AT NIGHT
     Route: 048
     Dates: start: 20100726
  15. ZOLEDRONATE [Concomitant]
     Indication: PROPHYLAXIS
     Route: 042
     Dates: start: 20100810

REACTIONS (4)
  - ASTHENIA [None]
  - DIZZINESS [None]
  - FALL [None]
  - LOWER RESPIRATORY TRACT INFECTION [None]
